FAERS Safety Report 15300203 (Version 3)
Quarter: 2018Q3

REPORT INFORMATION
  Report Type: Spontaneous
  Country: US (occurrence: US)
  Receive Date: 20180821
  Receipt Date: 20180917
  Transmission Date: 20181010
  Serious: No
  Sender: FDA-Public Use
  Company Number: US-PFIZER INC-2018336438

PATIENT
  Age: 84 Year
  Sex: Female
  Weight: 75.75 kg

DRUGS (1)
  1. ADVIL LIQUI?GELS [Suspect]
     Active Substance: IBUPROFEN
     Indication: ARTHRITIS
     Dosage: 400 MG, (200MG LIQUIGELS, 2 LIQUIGELS BY MOUTH ONCE)
     Route: 048

REACTIONS (2)
  - Drug ineffective [Recovered/Resolved]
  - Expired product administered [Recovered/Resolved]

NARRATIVE: CASE EVENT DATE: 20180812
